FAERS Safety Report 5571739-X (Version None)
Quarter: 2007Q4

REPORT INFORMATION
  Report Type: 
  Country: None (occurrence: None)
  Receive Date: 20071221
  Receipt Date: 20071217
  Transmission Date: 20080405
  Serious: Yes (Other)
  Sender: FDA-Public Use
  Company Number: A0700340A

PATIENT
  Sex: Female

DRUGS (2)
  1. IMITREX [Suspect]
     Indication: MIGRAINE
     Route: 048
  2. CONCURRENT MEDICATIONS [Concomitant]

REACTIONS (7)
  - ABDOMINAL PAIN UPPER [None]
  - BLINDNESS [None]
  - DRUG INTERACTION [None]
  - MIGRAINE [None]
  - NAUSEA [None]
  - OPTIC NEURITIS [None]
  - PHARMACEUTICAL PRODUCT COMPLAINT [None]
